FAERS Safety Report 10242499 (Version 1)
Quarter: 2014Q2

REPORT INFORMATION
  Report Type: Spontaneous
  Country: FR (occurrence: FR)
  Receive Date: 20140617
  Receipt Date: 20140617
  Transmission Date: 20141212
  Serious: Yes (Death)
  Sender: FDA-Public Use
  Company Number: 2013SP002023

PATIENT
  Age: 78 Year
  Sex: Male
  Weight: 70 kg

DRUGS (3)
  1. ESLICARBAZEPINE ACETATE [Suspect]
     Indication: PARTIAL SEIZURES
     Route: 048
     Dates: start: 20130201, end: 20130603
  2. FLECAINE [Concomitant]
     Indication: ARRHYTHMIA
     Dates: start: 2011, end: 20130603
  3. COTAREG [Concomitant]
     Indication: HYPERTENSION
     Dates: start: 1998, end: 20130603

REACTIONS (1)
  - Death [Fatal]
